FAERS Safety Report 11431880 (Version 1)
Quarter: 2015Q3

REPORT INFORMATION
  Report Type: Report from Study
  Country: US (occurrence: US)
  Receive Date: 20150828
  Receipt Date: 20150828
  Transmission Date: 20151125
  Serious: Yes (Hospitalization, Other)
  Sender: FDA-Public Use
  Company Number: PHEH2014US020909

PATIENT
  Sex: Male
  Weight: 70.4 kg

DRUGS (4)
  1. TOBI PODHALER [Suspect]
     Active Substance: TOBRAMYCIN
     Indication: RESPIRATORY DISORDER
  2. TOBI [Suspect]
     Active Substance: TOBRAMYCIN
     Indication: RESPIRATORY DISORDER
  3. TOBI [Suspect]
     Active Substance: TOBRAMYCIN
     Indication: CYSTIC FIBROSIS
     Dosage: UNK, BID
     Route: 055
  4. TOBI PODHALER [Suspect]
     Active Substance: TOBRAMYCIN
     Indication: CYSTIC FIBROSIS
     Dosage: 112 MG, BID
     Route: 055
     Dates: start: 201407

REACTIONS (2)
  - Pulmonary function test abnormal [Not Recovered/Not Resolved]
  - Lung disorder [Unknown]
